FAERS Safety Report 24811171 (Version 1)
Quarter: 2025Q1

REPORT INFORMATION
  Report Type: Spontaneous
  Country: US (occurrence: US)
  Receive Date: 20250106
  Receipt Date: 20250106
  Transmission Date: 20250408
  Serious: Yes (Hospitalization, Other)
  Sender: BRISTOL-MYERS SQUIBB COMPANY
  Company Number: US-BRISTOL-MYERS SQUIBB COMPANY-2024-201560

PATIENT
  Age: 34 Year
  Sex: Male

DRUGS (1)
  1. IPILIMUMAB [Suspect]
     Active Substance: IPILIMUMAB
     Indication: Malignant melanoma

REACTIONS (4)
  - Immune-mediated enterocolitis [Unknown]
  - Coeliac disease [Unknown]
  - Immune-mediated gastritis [Unknown]
  - Immune-mediated nephritis [Unknown]
